FAERS Safety Report 21004679 (Version 2)
Quarter: 2023Q2

REPORT INFORMATION
  Report Type: Report from Study
  Country: IT (occurrence: IT)
  Receive Date: 20220624
  Receipt Date: 20230403
  Transmission Date: 20230721
  Serious: Yes (Hospitalization)
  Sender: FDA-Public Use
  Company Number: IT-002147023-NVSC2022IT137860

PATIENT

DRUGS (8)
  1. RUXOLITINIB [Suspect]
     Active Substance: RUXOLITINIB
     Indication: Product used for unknown indication
     Dosage: 20 MG
     Route: 048
     Dates: start: 20220125, end: 20220510
  2. RUXOLITINIB [Suspect]
     Active Substance: RUXOLITINIB
     Dosage: (TOTAL DAILY DOSE: 40)
     Route: 065
     Dates: start: 20220125, end: 20220418
  3. RUXOLITINIB [Suspect]
     Active Substance: RUXOLITINIB
     Dosage: (TOTAL DAILY DOSE:20)
     Route: 065
     Dates: start: 20220419, end: 20220711
  4. CLOPIDOGREL [Concomitant]
     Active Substance: CLOPIDOGREL BISULFATE
     Indication: Myocardial ischaemia
     Dosage: 75 MG
     Route: 065
     Dates: start: 2019
  5. ASPIRIN [Concomitant]
     Active Substance: ASPIRIN
     Indication: Myocardial ischaemia
     Dosage: 100 MG
     Route: 065
     Dates: start: 2019
  6. BISOPROLOL FUMARATE [Concomitant]
     Active Substance: BISOPROLOL FUMARATE
     Indication: Cardiac failure chronic
     Dosage: 2.5 MG
     Route: 065
     Dates: start: 2019
  7. IRBESARTAN [Concomitant]
     Active Substance: IRBESARTAN
     Indication: Hypertension
     Dosage: 150 MG
     Route: 065
     Dates: start: 2019
  8. ALLOPURINOL [Concomitant]
     Active Substance: ALLOPURINOL
     Indication: Blood uric acid increased
     Dosage: 300 MG
     Route: 065
     Dates: start: 2019

REACTIONS (5)
  - Acute kidney injury [Recovering/Resolving]
  - Asthenia [Unknown]
  - Pyrexia [Recovering/Resolving]
  - Pneumonia [Recovering/Resolving]
  - Urinary tract infection [Unknown]

NARRATIVE: CASE EVENT DATE: 20220228
